FAERS Safety Report 16173231 (Version 1)
Quarter: 2019Q2

REPORT INFORMATION
  Report Type: Spontaneous
  Country: US (occurrence: US)
  Receive Date: 20190409
  Receipt Date: 20190409
  Transmission Date: 20190711
  Serious: No
  Sender: FDA-Public Use
  Company Number: US-BAYER-2019-070940

PATIENT
  Sex: Male

DRUGS (7)
  1. IRON [Concomitant]
     Active Substance: IRON
  2. MULTIVITAMIN [VITAMINS NOS] [Concomitant]
  3. BETASERON [Suspect]
     Active Substance: INTERFERON BETA-1B
     Indication: MULTIPLE SCLEROSIS
     Dosage: UNK
     Dates: start: 20160722
  4. MELATONIN [Concomitant]
     Active Substance: MELATONIN
  5. VITAMIN D [VITAMIN D NOS] [Concomitant]
     Active Substance: VITAMIN D NOS
  6. NAPROXEN. [Concomitant]
     Active Substance: NAPROXEN
  7. PHARMACY CHOICE SINUS NASAL DECONGESTANT [Concomitant]

REACTIONS (1)
  - Product dose omission [None]
